FAERS Safety Report 23121926 (Version 1)
Quarter: 2023Q4

REPORT INFORMATION
  Report Type: Report from Study
  Country: MX (occurrence: MX)
  Receive Date: 20231030
  Receipt Date: 20231030
  Transmission Date: 20240109
  Serious: Yes (Hospitalization, Other)
  Sender: FDA-Public Use
  Company Number: MX-ABBVIE-5471143

PATIENT
  Sex: Female
  Weight: 46 kg

DRUGS (3)
  1. HUMIRA [Suspect]
     Active Substance: ADALIMUMAB
     Indication: Rheumatoid arthritis
     Dosage: FORM STRENGTH: 40 MG
     Route: 058
     Dates: start: 20231025
  2. HUMIRA [Suspect]
     Active Substance: ADALIMUMAB
     Dosage: END DATE:2023  FORM STRENGTH: 40 MG
     Route: 058
     Dates: start: 20170407
  3. METFORMIN HYDROCHLORIDE [Concomitant]
     Active Substance: METFORMIN HYDROCHLORIDE
     Indication: Diabetes mellitus

REACTIONS (2)
  - Oesophageal varices haemorrhage [Recovering/Resolving]
  - Cough [Unknown]
